FAERS Safety Report 4694346-X (Version None)
Quarter: 2005Q2

REPORT INFORMATION
  Report Type: 
  Country: None (occurrence: None)
  Receive Date: 20050620
  Receipt Date: 20040123
  Transmission Date: 20051028
  Serious: Yes (Hospitalization, Other)
  Sender: FDA-Public Use
  Company Number: PHBS2004TR01351

PATIENT
  Age: 34 Year
  Sex: Female

DRUGS (2)
  1. ZELMAC [Suspect]
     Indication: IRRITABLE BOWEL SYNDROME
     Dosage: 6 UNK, BID
  2. PROZAC [Suspect]
     Indication: ANXIETY
     Dosage: 20 MG, QD

REACTIONS (8)
  - ANXIETY [None]
  - DEPRESSION [None]
  - DIZZINESS [None]
  - DRUG INTERACTION [None]
  - DYSPNOEA [None]
  - FEAR [None]
  - PALPITATIONS [None]
  - PANIC ATTACK [None]
